FAERS Safety Report 5139688-9 (Version None)
Quarter: 2006Q4

REPORT INFORMATION
  Report Type: 
  Country: None (occurrence: None)
  Receive Date: 20061024
  Receipt Date: 20061019
  Transmission Date: 20070319
  Serious: Yes (Other)
  Sender: FDA-Public Use
  Company Number: GXKR2006JP06560

PATIENT
  Age: 21 Year
  Sex: Male

DRUGS (4)
  1. PREDNISOLONE TAB [Suspect]
     Indication: NON-HODGKIN'S LYMPHOMA STAGE IV
     Dosage: 1680 MG
     Dates: start: 20040304, end: 20040418
  2. DEXAMETHASONE [Suspect]
     Indication: FACE OEDEMA
     Dosage: 16 MG, QD
  3. GLYCYRRHIZIC ACID (GLYCYRRHIZIC ACID) [Concomitant]
  4. CHEMOTHERAPEUTICS, OTHER (CHEMOTHERAPEUTICS, OTHER) [Concomitant]

REACTIONS (2)
  - HEPATIC STEATOSIS [None]
  - INSULIN RESISTANCE [None]
